FAERS Safety Report 7390937-6 (Version None)
Quarter: 2011Q2

REPORT INFORMATION
  Report Type: 
  Country: None (occurrence: None)
  Receive Date: 20110404
  Receipt Date: 20110321
  Transmission Date: 20111010
  Serious: Yes (Death, Other)
  Sender: FDA-Public Use
  Company Number: NZ-CELGENEUS-118-21880-11011216

PATIENT
  Sex: Male
  Weight: 74 kg

DRUGS (10)
  1. LAXSOL [Concomitant]
     Indication: CONSTIPATION PROPHYLAXIS
     Route: 048
     Dates: start: 20100901, end: 20110112
  2. CEFTRIAXONE [Concomitant]
     Indication: INFECTION PROPHYLAXIS
     Route: 051
     Dates: start: 20110112, end: 20110112
  3. REVLIMID [Suspect]
     Indication: MULTIPLE MYELOMA
     Dosage: 15 MILLIGRAM
     Route: 048
     Dates: start: 20100407, end: 20110111
  4. WARFARIN [Concomitant]
     Indication: ATRIAL FLUTTER
     Route: 048
     Dates: start: 20100728, end: 20110112
  5. VITAMINE K [Concomitant]
     Route: 051
     Dates: start: 20110111, end: 20110112
  6. ASPIRIN [Concomitant]
     Route: 048
     Dates: start: 20100407
  7. METOPROLOL [Concomitant]
     Indication: ATRIAL FIBRILLATION
     Route: 048
     Dates: start: 20100101, end: 20110112
  8. AMIODARONE [Concomitant]
     Indication: ATRIAL FLUTTER
     Route: 048
     Dates: start: 20100728, end: 20110102
  9. DEXAMETHASONE [Suspect]
     Indication: MULTIPLE MYELOMA
     Route: 065
  10. WARFARIN [Concomitant]
     Indication: ATRIAL FIBRILLATION
     Route: 048
     Dates: start: 20100224, end: 20100414

REACTIONS (1)
  - EMBOLISM ARTERIAL [None]
